FAERS Safety Report 6464628-X (Version None)
Quarter: 2009Q4

REPORT INFORMATION
  Report Type: 
  Country: None (occurrence: None)
  Receive Date: 20091201
  Receipt Date: 20091124
  Transmission Date: 20100525
  Serious: Yes (Hospitalization)
  Sender: FDA-Public Use
  Company Number: IT-BRISTOL-MYERS SQUIBB COMPANY-14859870

PATIENT
  Age: 40 Year
  Sex: Male

DRUGS (3)
  1. ABILIFY [Suspect]
     Indication: MANIA
     Dosage: ARIPIPRAZOLE DISCONTINUED ONE WEEK (AS PLANNED, BUT NOT FOR THE REACTION);30MG.INTERRUPTED 26FEB09
     Route: 048
     Dates: start: 20090123
  2. LITHIUM [Suspect]
     Indication: MANIA
     Route: 048
     Dates: start: 20090123
  3. DIAZEPAM [Concomitant]
     Dates: start: 20090123, end: 20090226

REACTIONS (6)
  - AKATHISIA [None]
  - DYSKINESIA [None]
  - LIPIDS ABNORMAL [None]
  - MANIA [None]
  - PSORIASIS [None]
  - VISION BLURRED [None]
